FAERS Safety Report 14803119 (Version 1)
Quarter: 2018Q2

REPORT INFORMATION
  Report Type: Spontaneous
  Country: GB (occurrence: GB)
  Receive Date: 20180425
  Receipt Date: 20180425
  Transmission Date: 20180711
  Serious: Yes (Other)
  Sender: FDA-Public Use
  Company Number: GB-TEVA-2018-GB-884510

PATIENT
  Age: 34 Year
  Sex: Male
  Weight: 63 kg

DRUGS (2)
  1. CODEINE PHOSPHATE [Concomitant]
     Active Substance: CODEINE PHOSPHATE
     Dosage: 1-2 AT NIGHT
     Route: 065
     Dates: start: 20180216
  2. NAPROXEN. [Suspect]
     Active Substance: NAPROXEN
     Route: 065
     Dates: start: 20180216

REACTIONS (2)
  - Rash generalised [Recovered/Resolved]
  - Dermatitis allergic [Recovered/Resolved]

NARRATIVE: CASE EVENT DATE: 20180216
